FAERS Safety Report 10136921 (Version 1)
Quarter: 2014Q2

REPORT INFORMATION
  Report Type: Spontaneous
  Country: US (occurrence: None)
  Receive Date: 20140428
  Receipt Date: 20140428
  Transmission Date: 20141212
  Serious: Yes (Other)
  Sender: FDA-Public Use
  Company Number: None

PATIENT
  Age: 55 Year
  Sex: Female

DRUGS (2)
  1. ZOLOFT [Suspect]
     Indication: GENERALISED ANXIETY DISORDER
     Route: 048
     Dates: start: 20140321, end: 20140425
  2. ZOLOFT [Suspect]
     Indication: DEPRESSION
     Route: 048
     Dates: start: 20140321, end: 20140425

REACTIONS (7)
  - Restless legs syndrome [None]
  - Vision blurred [None]
  - Agitation [None]
  - Hallucination, auditory [None]
  - Dizziness [None]
  - Depression [None]
  - Product substitution issue [None]
